FAERS Safety Report 21045762 (Version 2)
Quarter: 2022Q3

REPORT INFORMATION
  Report Type: Spontaneous
  Country: GB (occurrence: GB)
  Receive Date: 20220706
  Receipt Date: 20220708
  Transmission Date: 20221027
  Serious: Yes (Other)
  Sender: FDA-Public Use
  Company Number: GB-MHRA-MED-202206281207184850-RQBHD

PATIENT
  Sex: Male

DRUGS (2)
  1. SIMVASTATIN [Suspect]
     Active Substance: SIMVASTATIN
     Dosage: UNKNOWN
  2. RAMIPRIL [Suspect]
     Active Substance: RAMIPRIL
     Dosage: 5 MG

REACTIONS (2)
  - Palpitations [Unknown]
  - Drug dispensed to wrong patient [Unknown]
